FAERS Safety Report 14138345 (Version 1)
Quarter: 2017Q4

REPORT INFORMATION
  Report Type: Spontaneous
  Country: US (occurrence: US)
  Receive Date: 20171027
  Receipt Date: 20171027
  Transmission Date: 20180321
  Serious: No
  Sender: FDA-Public Use
  Company Number: US-ROCHE-1872050

PATIENT
  Sex: Female

DRUGS (1)
  1. TAMIFLU [Suspect]
     Active Substance: OSELTAMIVIR PHOSPHATE
     Indication: INFLUENZA
     Dosage: HARD CAPSULE IN POLYVINYL CHLORIDE (PVC) BLISTER 10 EA US
     Route: 048

REACTIONS (3)
  - Pain [Unknown]
  - Dizziness [Unknown]
  - Drug ineffective [Unknown]
